FAERS Safety Report 8013008-4 (Version None)
Quarter: 2011Q4

REPORT INFORMATION
  Report Type: 
  Country: None (occurrence: None)
  Receive Date: 20111229
  Receipt Date: 20111219
  Transmission Date: 20120403
  Serious: Yes (Death)
  Sender: FDA-Public Use
  Company Number: US-PFIZER INC-2011310033

PATIENT
  Age: 45 Year
  Sex: Female

DRUGS (5)
  1. AMITRIPTYLINE HCL [Suspect]
  2. ALPRAZOLAM [Suspect]
  3. NORTRIPTYLINE HYDROCHLORIDE [Suspect]
  4. CETIRIZINE [Suspect]
  5. MORPHINE SULFATE [Suspect]

REACTIONS (4)
  - RESPIRATORY ARREST [None]
  - TOXICITY TO VARIOUS AGENTS [None]
  - CARDIAC ARREST [None]
  - DEATH [None]
